FAERS Safety Report 9410503 (Version 1)
Quarter: 2013Q3

REPORT INFORMATION
  Report Type: Spontaneous
  Country: US (occurrence: None)
  Receive Date: 20130718
  Receipt Date: 20130718
  Transmission Date: 20140515
  Serious: Yes (Life-Threatening, Hospitalization)
  Sender: FDA-Public Use
  Company Number: None

PATIENT
  Age: 40 Year
  Sex: Female

DRUGS (1)
  1. NATALIZUMAB-TYSABRI- [Suspect]
     Indication: MULTIPLE SCLEROSIS
     Dosage: INFUSION, 1X/MONTH, IV
     Route: 042

REACTIONS (3)
  - Herpes simplex encephalitis [None]
  - Convulsion [None]
  - Hallucinations, mixed [None]
